FAERS Safety Report 9381523 (Version 1)
Quarter: 2013Q3

REPORT INFORMATION
  Report Type: Spontaneous
  Country: US (occurrence: US)
  Receive Date: 20130703
  Receipt Date: 20130703
  Transmission Date: 20140515
  Serious: No
  Sender: FDA-Public Use
  Company Number: US-BAYER-2013-072164

PATIENT
  Age: 54 Year
  Sex: Male

DRUGS (8)
  1. ALEVE CAPLET [Suspect]
     Dosage: UNK DF, UNK
  2. ACCURETIC [Concomitant]
     Dosage: 1 DF, QD
     Route: 048
  3. CYANOCOBALAMIN [Concomitant]
     Dosage: 1 DF, OTHER FREQUENCY
  4. JANUMET [Concomitant]
     Dosage: 1 DF, QD
     Route: 048
  5. NAPROXEN [Concomitant]
     Dosage: 1 DF, UNK
  6. POTASSIUM CHLORIDE [Concomitant]
     Dosage: 1 DF, QD
     Route: 048
  7. TESTOSTERONE [Concomitant]
  8. VITAMIN D [Concomitant]
     Dosage: 1 DF, UNK
     Route: 048

REACTIONS (2)
  - Drug hypersensitivity [None]
  - Anxiety [None]
